FAERS Safety Report 18774733 (Version 2)
Quarter: 2021Q1

REPORT INFORMATION
  Report Type: Spontaneous
  Country: HK (occurrence: HK)
  Receive Date: 20210122
  Receipt Date: 20210205
  Transmission Date: 20210419
  Serious: Yes (Hospitalization, Other)
  Sender: FDA-Public Use
  Company Number: HK-SUN PHARMACEUTICAL INDUSTRIES LTD-2021RR-277222

PATIENT
  Age: 67 Year
  Sex: Male

DRUGS (4)
  1. HALOPERIDOL. [Suspect]
     Active Substance: HALOPERIDOL
     Indication: DEMENTIA
     Dosage: 5 MILLIGRAM
     Route: 030
  2. QUETIAPINE. [Suspect]
     Active Substance: QUETIAPINE
     Indication: DEMENTIA
     Dosage: 25 MILLIGRAM, BID
     Route: 048
  3. EXELON [Suspect]
     Active Substance: RIVASTIGMINE TARTRATE
     Indication: DEMENTIA ALZHEIMER^S TYPE
     Dosage: FIVE TIMES PER WEEK
     Route: 065
  4. EBIXIA [Suspect]
     Active Substance: MEMANTINE
     Indication: DEMENTIA ALZHEIMER^S TYPE
     Dosage: FIVE TIMES PER WEEK
     Route: 065

REACTIONS (3)
  - Neuroleptic malignant syndrome [Unknown]
  - Drug ineffective [Unknown]
  - Condition aggravated [Unknown]
